FAERS Safety Report 19674484 (Version 1)
Quarter: 2021Q3

REPORT INFORMATION
  Report Type: Spontaneous
  Country: PL (occurrence: PL)
  Receive Date: 20210809
  Receipt Date: 20210809
  Transmission Date: 20211014
  Serious: No
  Sender: FDA-Public Use
  Company Number: PL-ALKEM LABORATORIES LIMITED-PL-ALKEM-2020-05599

PATIENT
  Age: 70 Year
  Sex: Male

DRUGS (2)
  1. ITRACONAZOLE. [Suspect]
     Active Substance: ITRACONAZOLE
     Indication: BASAL CELL CARCINOMA METASTATIC
     Dosage: 200 MILLIGRAM, BID
     Route: 065
  2. ITRACONAZOLE. [Suspect]
     Active Substance: ITRACONAZOLE
     Dosage: 100 MILLIGRAM, QD
     Route: 065

REACTIONS (6)
  - Disease progression [Unknown]
  - Ulcer [Unknown]
  - Abdominal pain [Unknown]
  - Soft tissue swelling [Unknown]
  - Dyspnoea [Unknown]
  - Off label use [Unknown]
